FAERS Safety Report 15794312 (Version 1)
Quarter: 2019Q1

REPORT INFORMATION
  Report Type: Report from Study
  Country: GR (occurrence: GR)
  Receive Date: 20190107
  Receipt Date: 20190107
  Transmission Date: 20190417
  Serious: Yes (Other)
  Sender: FDA-Public Use
  Company Number: GR-SA-2019SA001986

PATIENT
  Age: 53 Year
  Sex: Female

DRUGS (7)
  1. INSULIN GLARGINE [Suspect]
     Active Substance: INSULIN GLARGINE
     Indication: DIABETES MELLITUS
     Dosage: 18 U, QD
     Route: 058
     Dates: start: 2007
  2. INSULIN LISPRO [Suspect]
     Active Substance: INSULIN LISPRO
     Indication: DIABETES MELLITUS
     Dosage: 2-7 UNITS, QD
     Route: 065
     Dates: start: 2007
  3. FUROSEMIDE. [Suspect]
     Active Substance: FUROSEMIDE
     Indication: DIABETIC NEPHROPATHY
     Dosage: UNK
     Route: 048
  4. VELPHORO [Concomitant]
     Active Substance: FERRIC OXYHYDROXIDE
     Indication: BLOOD PHOSPHORUS
     Dosage: UNK, UNK
  5. ODASOL [OMEPRAZOLE] [Concomitant]
     Indication: ABDOMINAL DISCOMFORT
     Dosage: UNK UNK, UNK
  6. DUPHALAC [Concomitant]
     Active Substance: LACTULOSE
     Indication: ABDOMINAL DISCOMFORT
     Dosage: UNK, UNK
  7. INSULIN LISPRO [Suspect]
     Active Substance: INSULIN LISPRO
     Dosage: 7 U, UNK
     Route: 065

REACTIONS (5)
  - Hypoglycaemia [Unknown]
  - Diabetic nephropathy [Unknown]
  - Epilepsy [Unknown]
  - Diabetic foot [Unknown]
  - Pain in extremity [Unknown]
